FAERS Safety Report 10076586 (Version 1)
Quarter: 2014Q2

REPORT INFORMATION
  Report Type: Spontaneous
  Country: US (occurrence: US)
  Receive Date: 20140414
  Receipt Date: 20140414
  Transmission Date: 20141212
  Serious: No
  Sender: FDA-Public Use
  Company Number: US-PFIZER INC-2014102624

PATIENT
  Age: 65 Year
  Sex: Female

DRUGS (8)
  1. CELEBREX [Suspect]
     Dosage: UNK
  2. GABAPENTIN [Suspect]
     Dosage: UNK
  3. IBUPROFEN [Suspect]
     Dosage: UNK
  4. HYDROCHLOROTHIAZIDE [Suspect]
     Dosage: UNK
  5. NORCO [Suspect]
     Dosage: UNK
  6. MEVACOR [Suspect]
     Dosage: UNK
  7. ZOCOR [Suspect]
     Dosage: UNK
  8. TRAZODONE [Suspect]
     Dosage: UNK

REACTIONS (1)
  - Drug hypersensitivity [Unknown]
